FAERS Safety Report 9532346 (Version 1)
Quarter: 2013Q3

REPORT INFORMATION
  Report Type: Spontaneous
  Country: US (occurrence: None)
  Receive Date: 20130916
  Receipt Date: 20130916
  Transmission Date: 20140515
  Serious: Yes (Other)
  Sender: FDA-Public Use
  Company Number: 1890469

PATIENT
  Age: 66 Year
  Sex: Female

DRUGS (9)
  1. CIPROFLOXACIN [Suspect]
     Indication: URINARY TRACT INFECTION
  2. CLOZAPINE [Suspect]
     Indication: SCHIZOPHRENIA, PARANOID TYPE
     Route: 048
  3. ACETAMINOPHEN [Concomitant]
  4. BUSPIRONE [Concomitant]
  5. DILTIAZEM [Concomitant]
  6. DONEPEZIL [Concomitant]
  7. ESCITALOPRAM [Concomitant]
  8. LEVOTHYROXINE [Concomitant]
  9. OMEPRAZOLE [Concomitant]

REACTIONS (5)
  - Urinary tract infection [None]
  - Neuroleptic malignant syndrome [None]
  - Drug interaction [None]
  - Pneumonia bacterial [None]
  - Weight decreased [None]
